FAERS Safety Report 12730351 (Version 2)
Quarter: 2016Q4

REPORT INFORMATION
  Report Type: Spontaneous
  Country: US (occurrence: US)
  Receive Date: 20160909
  Receipt Date: 20161026
  Transmission Date: 20170207
  Serious: Yes (Other)
  Sender: FDA-Public Use
  Company Number: US-GLAXOSMITHKLINE-US2016GSK130573

PATIENT
  Age: 56 Year
  Sex: Female

DRUGS (2)
  1. TANZEUM [Suspect]
     Active Substance: ALBIGLUTIDE
     Dosage: 30 MG, UNK
     Dates: start: 20160905
  2. TANZEUM [Suspect]
     Active Substance: ALBIGLUTIDE
     Indication: TYPE 2 DIABETES MELLITUS
     Dosage: 50 MG, WE
     Route: 042
     Dates: start: 201511

REACTIONS (16)
  - Expired product administered [Unknown]
  - Incorrect dose administered [Unknown]
  - Dry throat [Unknown]
  - Product quality issue [Unknown]
  - Device breakage [Unknown]
  - Diverticulitis [Unknown]
  - Pneumonia [Unknown]
  - Dyspnoea [Unknown]
  - Pain [Unknown]
  - Swelling [Unknown]
  - Oropharyngeal pain [Unknown]
  - Cough [Not Recovered/Not Resolved]
  - Diarrhoea [Unknown]
  - Pharyngitis streptococcal [Unknown]
  - Productive cough [Unknown]
  - Device leakage [Unknown]

NARRATIVE: CASE EVENT DATE: 201608
